FAERS Safety Report 22600977 (Version 1)
Quarter: 2023Q2

REPORT INFORMATION
  Report Type: Spontaneous
  Country: US (occurrence: US)
  Receive Date: 20230614
  Receipt Date: 20230614
  Transmission Date: 20230722
  Serious: No
  Sender: FDA-Public Use
  Company Number: US-RIGEL PHARMACEUTICALS, INC.-2022FOS000524

PATIENT
  Sex: Female
  Weight: 122 kg

DRUGS (1)
  1. TAVALISSE [Suspect]
     Active Substance: FOSTAMATINIB
     Indication: Immune thrombocytopenia
     Dosage: 150 MG, BID
     Route: 048
     Dates: start: 20220530

REACTIONS (5)
  - Stomatitis [Unknown]
  - Dysphagia [Unknown]
  - Candida infection [Unknown]
  - Localised infection [Unknown]
  - Rash [Unknown]

NARRATIVE: CASE EVENT DATE: 20220101
